FAERS Safety Report 6249160-0 (Version None)
Quarter: 2009Q2

REPORT INFORMATION
  Report Type: 
  Country: None (occurrence: None)
  Receive Date: 20090624
  Receipt Date: 20090624
  Transmission Date: 20091009
  Serious: No
  Sender: FDA-Public Use
  Company Number: None

PATIENT
  Sex: Female
  Weight: 72 kg

DRUGS (1)
  1. CEPHALEXIN [Suspect]
     Indication: LOCALISED INFECTION
     Dosage: X1 PO
     Route: 048
     Dates: start: 20090424, end: 20090424

REACTIONS (12)
  - ACUTE PULMONARY OEDEMA [None]
  - ANAPHYLACTIC REACTION [None]
  - COUGH [None]
  - DRUG HYPERSENSITIVITY [None]
  - HAEMATEMESIS [None]
  - MECHANICAL VENTILATION COMPLICATION [None]
  - NAUSEA [None]
  - OROPHARYNGEAL PAIN [None]
  - OXYGEN SATURATION DECREASED [None]
  - RESPIRATORY FAILURE [None]
  - STRIDOR [None]
  - VOMITING [None]
